FAERS Safety Report 24995702 (Version 3)
Quarter: 2025Q1

REPORT INFORMATION
  Report Type: Spontaneous
  Country: JP (occurrence: JP)
  Receive Date: 20250221
  Receipt Date: 20250328
  Transmission Date: 20250409
  Serious: Yes (Other)
  Sender: MERZ
  Company Number: JP-teijin-202500591_XEO_P_1

PATIENT

DRUGS (26)
  1. XEOMIN [Suspect]
     Active Substance: INCOBOTULINUMTOXINA
     Indication: Muscle spasticity
     Dosage: 400 INTERNATIONAL UNIT
     Route: 030
     Dates: start: 20240607, end: 20240607
  2. XEOMIN [Suspect]
     Active Substance: INCOBOTULINUMTOXINA
     Dosage: 100 INTERNATIONAL UNIT
     Route: 030
     Dates: start: 20221104, end: 20221104
  3. XEOMIN [Suspect]
     Active Substance: INCOBOTULINUMTOXINA
     Dosage: 200 INTERNATIONAL UNIT
     Route: 030
     Dates: start: 20230512, end: 20230512
  4. XEOMIN [Suspect]
     Active Substance: INCOBOTULINUMTOXINA
     Dosage: 300 INTERNATIONAL UNIT
     Route: 030
     Dates: start: 20230804, end: 20230804
  5. XEOMIN [Suspect]
     Active Substance: INCOBOTULINUMTOXINA
     Dosage: 300 INTERNATIONAL UNIT
     Route: 030
     Dates: start: 20231130, end: 20231130
  6. XEOMIN [Suspect]
     Active Substance: INCOBOTULINUMTOXINA
     Dosage: 300 INTERNATIONAL UNIT
     Route: 030
     Dates: start: 20240301, end: 20240301
  7. XEOMIN [Suspect]
     Active Substance: INCOBOTULINUMTOXINA
     Dosage: 400 INTERNATIONAL UNIT
     Route: 030
     Dates: start: 20240906, end: 20240906
  8. XEOMIN [Suspect]
     Active Substance: INCOBOTULINUMTOXINA
     Dosage: 400 INTERNATIONAL UNIT
     Route: 030
     Dates: start: 20241206, end: 20241206
  9. CERCINE [Concomitant]
     Active Substance: DIAZEPAM
     Indication: Hypertonia
     Dosage: 3.5 MILLIGRAM
  10. DANTRIUM [Concomitant]
     Active Substance: DANTROLENE SODIUM
     Indication: Hypertonia
     Dosage: 12.5 MILLIGRAM
  11. EPERISONE HYDROCHLORIDE [Concomitant]
     Active Substance: EPERISONE HYDROCHLORIDE
     Indication: Hypertonia
     Dosage: 50 MILLIGRAM
  12. RISPERIDONE [Concomitant]
     Active Substance: RISPERIDONE
     Indication: Psychomotor hyperactivity
     Dosage: 0.5 MILLIGRAM
  13. TAMSULOSIN HYDROCHLORIDE [Concomitant]
     Active Substance: TAMSULOSIN HYDROCHLORIDE
     Indication: Urinary tract infection
     Dosage: 0.2 MILLIGRAM
     Dates: start: 202306
  14. TAMSULOSIN HYDROCHLORIDE [Concomitant]
     Active Substance: TAMSULOSIN HYDROCHLORIDE
     Indication: Neurogenic bladder
  15. AMITIZA [Concomitant]
     Active Substance: LUBIPROSTONE
     Indication: Constipation
     Dosage: 24 MICROGRAM
  16. ACHILLEA MILLEFOLIUM\RUBIA TINCTURE\SENNA FRUIT EXTRACT\SENNA LEAF\TAR [Concomitant]
     Active Substance: ACHILLEA MILLEFOLIUM\RUBIA TINCTURE\SENNA FRUIT EXTRACT\SENNA LEAF\TARAXACUM OFFICINALE
     Indication: Constipation
     Dosage: 0.5 GRAM
  17. FAMOTIDINE [Concomitant]
     Active Substance: FAMOTIDINE
     Indication: Gastrooesophageal reflux disease
     Dosage: 10 MILLIGRAM
  18. TEPRENONE [Concomitant]
     Active Substance: TEPRENONE
     Indication: Chronic gastritis
     Dosage: 50 MILLIGRAM
  19. MOSAPRIDE CITRATE [Concomitant]
     Active Substance: MOSAPRIDE CITRATE
     Indication: Chronic gastritis
     Dosage: 5 MILLIGRAM
  20. MENATETRENONE [Concomitant]
     Active Substance: MENATETRENONE
     Indication: Vitamin K deficiency
     Dosage: 15 MILLIGRAM
  21. POLAPREZINC [Concomitant]
     Active Substance: POLAPREZINC
     Indication: Zinc deficiency
     Dosage: 50 MILLIGRAM
  22. LEVOCARNITINE [Concomitant]
     Active Substance: LEVOCARNITINE
     Indication: Carnitine deficiency
     Dosage: 5 MILLILITRE
  23. DISTIGMINE BROMIDE [Concomitant]
     Active Substance: DISTIGMINE BROMIDE
     Indication: Neurogenic bladder
     Route: 048
     Dates: end: 202306
  24. UNSPECIFIED INGREDIENT [Concomitant]
     Active Substance: UNSPECIFIED INGREDIENT
     Indication: Pyelonephritis acute
  25. UNSPECIFIED INGREDIENT [Concomitant]
     Active Substance: UNSPECIFIED INGREDIENT
     Route: 048
  26. UNSPECIFIED INGREDIENT [Concomitant]
     Active Substance: UNSPECIFIED INGREDIENT
     Indication: Epilepsy
     Route: 048

REACTIONS (3)
  - Pyelonephritis acute [Recovered/Resolved]
  - Dysuria [Recovered/Resolved]
  - Urinary tract infection [Recovered/Resolved]

NARRATIVE: CASE EVENT DATE: 20240620
